FAERS Safety Report 5855523-5 (Version None)
Quarter: 2008Q3

REPORT INFORMATION
  Report Type: 
  Country: None (occurrence: None)
  Receive Date: 20080821
  Receipt Date: 20080811
  Transmission Date: 20090109
  Serious: Yes (Hospitalization)
  Sender: FDA-Public Use
  Company Number: 2008BI004674

PATIENT
  Age: 54 Year
  Sex: Female

DRUGS (1)
  1. AVONEX [Suspect]
     Indication: MULTIPLE SCLEROSIS
     Dosage: 30 UG;QW;IM
     Route: 030
     Dates: start: 20070820

REACTIONS (4)
  - CONDITION AGGRAVATED [None]
  - FULL BLOOD COUNT DECREASED [None]
  - GASTROINTESTINAL DISORDER [None]
  - HAEMORRHOIDS [None]
